FAERS Safety Report 13005567 (Version 1)
Quarter: 2016Q4

REPORT INFORMATION
  Report Type: Spontaneous
  Country: US (occurrence: US)
  Receive Date: 20161207
  Receipt Date: 20161207
  Transmission Date: 20170207
  Serious: No
  Sender: FDA-Public Use
  Company Number: US-JNJFOC-20161026418

PATIENT
  Sex: Female

DRUGS (2)
  1. REMICADE [Suspect]
     Active Substance: INFLIXIMAB
     Indication: PRODUCT USED FOR UNKNOWN INDICATION
     Route: 042
  2. REMICADE [Suspect]
     Active Substance: INFLIXIMAB
     Indication: PRODUCT USED FOR UNKNOWN INDICATION
     Route: 042
     Dates: start: 201608, end: 2016

REACTIONS (7)
  - Pyrexia [Unknown]
  - Infusion related reaction [Unknown]
  - Throat tightness [Unknown]
  - Contraindication to vaccination [Unknown]
  - Diarrhoea [Recovered/Resolved]
  - Bacterial infection [Unknown]
  - Urticaria [Unknown]

NARRATIVE: CASE EVENT DATE: 2016
